FAERS Safety Report 6592258-8 (Version None)
Quarter: 2010Q1

REPORT INFORMATION
  Report Type: 
  Country: None (occurrence: None)
  Receive Date: 20100221
  Receipt Date: 20090918
  Transmission Date: 20100710
  Serious: No
  Sender: FDA-Public Use
  Company Number: US-ALLERGAN-0913117US

PATIENT
  Sex: Female

DRUGS (1)
  1. BOTOX COSMETIC [Suspect]
     Indication: SKIN WRINKLING
     Dosage: 17 UNITS, SINGLE
     Route: 030
     Dates: start: 20090611, end: 20090611

REACTIONS (8)
  - ABNORMAL DREAMS [None]
  - ANXIETY [None]
  - BINOCULAR EYE MOVEMENT DISORDER [None]
  - DRY MOUTH [None]
  - DRY THROAT [None]
  - RASH [None]
  - SWELLING FACE [None]
  - TRISMUS [None]
